FAERS Safety Report 5638375-8 (Version None)
Quarter: 2008Q1

REPORT INFORMATION
  Report Type: 
  Country: None (occurrence: None)
  Receive Date: 20080226
  Receipt Date: 20080218
  Transmission Date: 20080703
  Serious: Yes (Life-Threatening)
  Sender: FDA-Public Use
  Company Number: FR-ASTRAZENECA-2008CG00270

PATIENT
  Age: 25015 Day
  Sex: Male

DRUGS (8)
  1. DIPRIVAN [Suspect]
     Indication: ANAESTHESIA
     Route: 042
     Dates: start: 20070806, end: 20070806
  2. TRACRIUM [Suspect]
     Indication: ANAESTHESIA
     Route: 042
     Dates: start: 20070806, end: 20070806
  3. DROLEPTAN [Suspect]
     Indication: ANAESTHESIA
     Route: 042
     Dates: start: 20070806, end: 20070806
  4. SUFENTA [Suspect]
     Indication: ANAESTHESIA
     Route: 042
     Dates: start: 20070806, end: 20070806
  5. CEFAZOLIN [Suspect]
     Indication: ANTIBIOTIC PROPHYLAXIS
     Route: 042
     Dates: start: 20070806, end: 20070806
  6. DEXAMETHASONE TAB [Suspect]
     Route: 042
     Dates: start: 20070806, end: 20070806
  7. XANAX [Concomitant]
     Indication: PREMEDICATION
  8. TAGAMET [Concomitant]
     Indication: PREMEDICATION

REACTIONS (1)
  - ANAPHYLACTIC SHOCK [None]
